FAERS Safety Report 11930847 (Version 1)
Quarter: 2016Q1

REPORT INFORMATION
  Report Type: Spontaneous
  Country: US (occurrence: None)
  Receive Date: 20160120
  Receipt Date: 20160120
  Transmission Date: 20160526
  Serious: Yes (Hospitalization)
  Sender: FDA-Public Use
  Company Number: None

PATIENT
  Age: 12 Year
  Sex: Male
  Weight: 49.9 kg

DRUGS (5)
  1. VINCRISTINE [Suspect]
     Active Substance: VINCRISTINE
     Dates: end: 20160104
  2. ONCASPAR [Suspect]
     Active Substance: PEGASPARGASE
     Dates: end: 20151224
  3. DAUNORUBICIN [Suspect]
     Active Substance: DAUNORUBICIN
     Dates: end: 20151228
  4. CYTARABINE. [Suspect]
     Active Substance: CYTARABINE
     Dates: end: 20151221
  5. METHOTREXATE [Suspect]
     Active Substance: METHOTREXATE
     Dates: end: 20151228

REACTIONS (3)
  - Pleural effusion [None]
  - Respiratory distress [None]
  - Atelectasis [None]

NARRATIVE: CASE EVENT DATE: 20160105
